FAERS Safety Report 4872912-6 (Version None)
Quarter: 2006Q1

REPORT INFORMATION
  Report Type: 
  Country: None (occurrence: None)
  Receive Date: 20060105
  Receipt Date: 20050118
  Transmission Date: 20060701
  Serious: No
  Sender: FDA-Public Use
  Company Number: US-BRISTOL-MYERS SQUIBB COMPANY-12829552

PATIENT
  Sex: Female

DRUGS (3)
  1. SERZONE [Suspect]
     Indication: DEPRESSION
     Route: 048
     Dates: start: 19971101
  2. PERCOCET [Concomitant]
  3. ACYCLOVIR [Concomitant]

REACTIONS (2)
  - BLOOD ALKALINE PHOSPHATASE INCREASED [None]
  - GAMMA-GLUTAMYLTRANSFERASE INCREASED [None]
